FAERS Safety Report 9637073 (Version 1)
Quarter: 2013Q4

REPORT INFORMATION
  Report Type: Spontaneous
  Country: FR (occurrence: FR)
  Receive Date: 20131022
  Receipt Date: 20131022
  Transmission Date: 20140711
  Serious: Yes (Life-Threatening)
  Sender: FDA-Public Use
  Company Number: FR-ROCHE-1292087

PATIENT
  Sex: Female

DRUGS (4)
  1. AVASTIN [Suspect]
     Indication: PRODUCT USED FOR UNKNOWN INDICATION
     Dosage: 25 MG/ML
     Route: 042
     Dates: start: 201110, end: 201302
  2. CO-RENITEC [Suspect]
     Indication: PRODUCT USED FOR UNKNOWN INDICATION
     Route: 048
     Dates: start: 201201, end: 20130705
  3. DOXORUBICINE [Concomitant]
     Route: 065
     Dates: start: 201304
  4. CYCLOPHOSPHAMIDE [Concomitant]

REACTIONS (3)
  - Renal failure acute [Not Recovered/Not Resolved]
  - Renal tubular necrosis [Not Recovered/Not Resolved]
  - Thrombotic microangiopathy [Recovered/Resolved with Sequelae]
